FAERS Safety Report 6331116-0 (Version None)
Quarter: 2009Q3

REPORT INFORMATION
  Report Type: 
  Country: None (occurrence: None)
  Receive Date: 20090827
  Receipt Date: 20090820
  Transmission Date: 20100115
  Serious: Yes (Hospitalization)
  Sender: FDA-Public Use
  Company Number: US-GILEAD-2009-0023817

PATIENT
  Sex: Female
  Weight: 65.83 kg

DRUGS (4)
  1. LETAIRIS [Suspect]
     Indication: PULMONARY ARTERIAL HYPERTENSION
     Route: 048
     Dates: start: 20090611
  2. FUROSEMIDE [Concomitant]
  3. ASPIRIN [Concomitant]
  4. KLOR-CON [Concomitant]

REACTIONS (4)
  - ANURIA [None]
  - FLUID RETENTION [None]
  - KIDNEY INFECTION [None]
  - LOCALISED OEDEMA [None]
